FAERS Safety Report 4314526-2 (Version None)
Quarter: 2004Q1

REPORT INFORMATION
  Report Type: 
  Country: None (occurrence: None)
  Receive Date: 20040309
  Receipt Date: 20040223
  Transmission Date: 20041129
  Serious: Yes (Hospitalization)
  Sender: FDA-Public Use
  Company Number: 04P-161-0251268-00

PATIENT
  Age: 13 Year
  Sex: Male
  Weight: 50 kg

DRUGS (1)
  1. AKINETON [Suspect]
     Indication: PSYCHOTIC DISORDER
     Dosage: 2 MG, 2 IN 1 D, ORAL
     Route: 048
     Dates: start: 20040124, end: 20040131

REACTIONS (2)
  - HYPERTONIA [None]
  - LOSS OF CONSCIOUSNESS [None]
